FAERS Safety Report 18975342 (Version 5)
Quarter: 2025Q3

REPORT INFORMATION
  Report Type: Report from Study
  Country: US (occurrence: US)
  Receive Date: 20210305
  Receipt Date: 20250703
  Transmission Date: 20251021
  Serious: Yes (Other)
  Sender: TAKEDA
  Company Number: US-TAKEDA-US201823320

PATIENT
  Sex: Female
  Weight: 54.422 kg

DRUGS (10)
  1. HUMAN IMMUNOGLOBULIN G [Suspect]
     Active Substance: HUMAN IMMUNOGLOBULIN G
     Indication: Immunodeficiency common variable
     Dosage: 40 GRAM, Q4WEEKS
  2. HUMAN IMMUNOGLOBULIN G [Suspect]
     Active Substance: HUMAN IMMUNOGLOBULIN G
     Dosage: 55 GRAM, Q4WEEKS
  3. EPINEPHRINE [Concomitant]
     Active Substance: EPINEPHRINE
  4. ACETAMINOPHEN [Concomitant]
     Active Substance: ACETAMINOPHEN
  5. SODIUM CHLORIDE [Concomitant]
     Active Substance: SODIUM CHLORIDE
  6. MELATONIN [Concomitant]
     Active Substance: MELATONIN
  7. LIDOCAINE [Concomitant]
     Active Substance: LIDOCAINE
  8. IRON [Concomitant]
     Active Substance: IRON
  9. DIPHENHYDRAMINE HYDROCHLORIDE [Concomitant]
     Active Substance: DIPHENHYDRAMINE HYDROCHLORIDE
  10. URSODIOL [Concomitant]
     Active Substance: URSODIOL

REACTIONS (8)
  - Gastric cancer [Unknown]
  - Product distribution issue [Unknown]
  - Vein rupture [Unknown]
  - Peripheral swelling [Unknown]
  - Product dose omission issue [Unknown]
  - Infusion site extravasation [Unknown]
  - Nasopharyngitis [Unknown]
  - Multiple allergies [Unknown]
